FAERS Safety Report 20804436 (Version 1)
Quarter: 2022Q2

REPORT INFORMATION
  Report Type: Spontaneous
  Country: CA (occurrence: CA)
  Receive Date: 20220509
  Receipt Date: 20220509
  Transmission Date: 20220721
  Serious: Yes (Other)
  Sender: FDA-Public Use
  Company Number: CA-SANOFI-01006369

PATIENT
  Sex: Male

DRUGS (1)
  1. PRALUENT [Suspect]
     Active Substance: ALIROCUMAB
     Indication: Hyperlipidaemia
     Dosage: 150 MG, QOW
     Route: 058
     Dates: start: 20150330, end: 20220321

REACTIONS (29)
  - Cellulitis [Not Recovered/Not Resolved]
  - Hypersensitivity vasculitis [Unknown]
  - Osteonecrosis [Not Recovered/Not Resolved]
  - Injection site infection [Unknown]
  - Lethargy [Recovered/Resolved]
  - Malaise [Recovered/Resolved]
  - Fatigue [Not Recovered/Not Resolved]
  - Umbilical erythema [Not Recovered/Not Resolved]
  - Pain [Not Recovered/Not Resolved]
  - Ecchymosis [Not Recovered/Not Resolved]
  - Local reaction [Not Recovered/Not Resolved]
  - Erythema [Not Recovered/Not Resolved]
  - Lethargy [Not Recovered/Not Resolved]
  - Irritability [Not Recovered/Not Resolved]
  - Arthralgia [Not Recovered/Not Resolved]
  - Dyspnoea exertional [Not Recovered/Not Resolved]
  - Stress [Not Recovered/Not Resolved]
  - Injection site pain [Unknown]
  - Hypersensitivity [Not Recovered/Not Resolved]
  - Injection site rash [Not Recovered/Not Resolved]
  - Hypersensitivity [Not Recovered/Not Resolved]
  - Chemotherapy [Not Recovered/Not Resolved]
  - Feeling abnormal [Unknown]
  - Abdominal pain [Not Recovered/Not Resolved]
  - Injection site hypersensitivity [Unknown]
  - Injection site bruising [Recovered/Resolved]
  - Injection site discomfort [Unknown]
  - Serum sickness [Unknown]
  - Injection site erythema [Unknown]

NARRATIVE: CASE EVENT DATE: 20220101
